FAERS Safety Report 7985099-8 (Version None)
Quarter: 2011Q4

REPORT INFORMATION
  Report Type: 
  Country: None (occurrence: None)
  Receive Date: 20111216
  Receipt Date: 20111212
  Transmission Date: 20120403
  Serious: Yes (Death, Hospitalization, Other)
  Sender: FDA-Public Use
  Company Number: PHFR2011GB01808

PATIENT
  Sex: Male

DRUGS (1)
  1. CLOZARIL [Suspect]
     Indication: SCHIZOPHRENIA
     Route: 048
     Dates: start: 20021103

REACTIONS (18)
  - MULTI-ORGAN FAILURE [None]
  - SCHIZOPHRENIA [None]
  - MENTAL IMPAIRMENT [None]
  - MALNUTRITION [None]
  - OBSESSIVE-COMPULSIVE DISORDER [None]
  - INFECTIOUS PERITONITIS [None]
  - DIARRHOEA [None]
  - CACHEXIA [None]
  - LARGE INTESTINE PERFORATION [None]
  - INTESTINAL OBSTRUCTION [None]
  - MENTAL DISORDER [None]
  - PNEUMONIA [None]
  - PICA [None]
  - H1N1 INFLUENZA [None]
  - ASTHENIA [None]
  - LEARNING DISABILITY [None]
  - BRONCHOPNEUMONIA [None]
  - SALMONELLOSIS [None]
